FAERS Safety Report 4880650-9 (Version None)
Quarter: 2006Q1

REPORT INFORMATION
  Report Type: 
  Country: None (occurrence: None)
  Receive Date: 20060113
  Receipt Date: 20050428
  Transmission Date: 20060701
  Serious: Yes (Hospitalization, Disabling)
  Sender: FDA-Public Use
  Company Number: US-MERCK-0505USA00160

PATIENT
  Age: 80 Year
  Sex: Female
  Weight: 69 kg

DRUGS (1)
  1. VIOXX [Suspect]
     Indication: ARTHRITIS
     Route: 048
     Dates: start: 20010224, end: 20040807

REACTIONS (4)
  - ARRHYTHMIA SUPRAVENTRICULAR [None]
  - CEREBROVASCULAR ACCIDENT [None]
  - FOOT FRACTURE [None]
  - SICK SINUS SYNDROME [None]
